FAERS Safety Report 7678574-7 (Version None)
Quarter: 2011Q3

REPORT INFORMATION
  Report Type: 
  Country: None (occurrence: None)
  Receive Date: 20110811
  Receipt Date: 20110809
  Transmission Date: 20111222
  Serious: Yes (Hospitalization)
  Sender: FDA-Public Use
  Company Number: GXKR2011DE02524

PATIENT
  Sex: Male
  Weight: 76 kg

DRUGS (2)
  1. SIMVASTATIN [Interacting]
     Indication: HYPERCHOLESTEROLAEMIA
     Dosage: 20 MG, UNK
     Route: 048
     Dates: start: 20080101, end: 20110801
  2. ENALAPRIL MALEATE [Suspect]
     Indication: HYPERTENSION
     Dosage: 5 MG, QD
     Route: 048
     Dates: start: 20080101, end: 20110801

REACTIONS (4)
  - DIZZINESS [None]
  - DRUG INTERACTION [None]
  - CHILLS [None]
  - BLOOD PRESSURE INCREASED [None]
